FAERS Safety Report 7431999 (Version 2)
Quarter: 2014Q1

REPORT INFORMATION
  Report Type: Spontaneous
  Country: US (occurrence: US)
  Receive Date: 20100624
  Receipt Date: 20140129
  Transmission Date: 20141002
  Serious: Yes (Hospitalization, Other)
  Sender: FDA-Public Use
  Company Number: US-JNJFOC-20100605448

PATIENT
  Age: 36 Year
  Sex: Male
  Weight: 68.04 kg

DRUGS (3)
  1. DURAGESIC [Suspect]
     Indication: PAIN
     Dosage: 100 UG/HR PLUS 50 UG/HR
     Route: 062
     Dates: start: 2005, end: 201004
  2. DURAGESIC [Suspect]
     Indication: PAIN
     Dosage: 100 UG/HR PLUS 50 UG/HR
     Route: 062
     Dates: start: 201004
  3. PAIN MEDICATIONS (NOS) [Concomitant]
     Indication: PRODUCT USED FOR UNKNOWN INDICATION
     Route: 065

REACTIONS (11)
  - Bacterial infection [Recovered/Resolved]
  - Lower respiratory tract infection bacterial [Recovered/Resolved]
  - Furuncle [Recovered/Resolved]
  - Application site reaction [Recovered/Resolved]
  - Amnesia [Not Recovered/Not Resolved]
  - Thrombosis [Recovered/Resolved]
  - Wrong technique in drug usage process [Not Recovered/Not Resolved]
  - Wrong technique in drug usage process [Not Recovered/Not Resolved]
  - Drug administered at inappropriate site [Not Recovered/Not Resolved]
  - Blood testosterone decreased [Not Recovered/Not Resolved]
  - Drug ineffective [Not Recovered/Not Resolved]
